FAERS Safety Report 7815315-4 (Version None)
Quarter: 2011Q4

REPORT INFORMATION
  Report Type: 
  Country: None (occurrence: None)
  Receive Date: 20111014
  Receipt Date: 20111005
  Transmission Date: 20120403
  Serious: Yes (Other)
  Sender: FDA-Public Use
  Company Number: CA-BAXTER-2011BH031676

PATIENT
  Age: 2 Year
  Sex: Male

DRUGS (2)
  1. ADVATE [Suspect]
     Indication: OFF LABEL USE
     Route: 065
  2. ADVATE [Suspect]
     Indication: IMMUNE TOLERANCE INDUCTION
     Route: 065

REACTIONS (2)
  - FACTOR VIII INHIBITION [None]
  - THERAPEUTIC PRODUCT INEFFECTIVE FOR UNAPPROVED INDICATION [None]
